FAERS Safety Report 8125462-8 (Version None)
Quarter: 2012Q1

REPORT INFORMATION
  Report Type: 
  Country: None (occurrence: None)
  Receive Date: 20120206
  Receipt Date: 20120125
  Transmission Date: 20120608
  Serious: Yes (Other)
  Sender: FDA-Public Use
  Company Number: 2012MA001242

PATIENT
  Age: 24 Year

DRUGS (1)
  1. HALOPERIDOL LACTATE [Suspect]

REACTIONS (1)
  - LARYNGEAL OEDEMA [None]
